FAERS Safety Report 17908347 (Version 1)
Quarter: 2020Q2

REPORT INFORMATION
  Report Type: Spontaneous
  Country: US (occurrence: US)
  Receive Date: 20200617
  Receipt Date: 20200617
  Transmission Date: 20200714
  Serious: Yes (Hospitalization, Other)
  Sender: FDA-Public Use
  Company Number: US-BRISTOL-MYERS SQUIBB COMPANY-BMS-2020-044636

PATIENT
  Sex: Male
  Weight: 120.2 kg

DRUGS (3)
  1. LISINOPRIL. [Concomitant]
     Active Substance: LISINOPRIL
     Indication: PRODUCT USED FOR UNKNOWN INDICATION
     Dosage: UNK
     Route: 065
  2. COUMADIN [Suspect]
     Active Substance: WARFARIN SODIUM
     Indication: THROMBOSIS
     Dosage: 5 MGS DAILY, EXCEPT ON TUESDAY AND THURSDAY, HE TAKES 1/2 OF A TABLET
     Route: 048
     Dates: start: 2000
  3. NEOSPORIN [Suspect]
     Active Substance: BACITRACIN ZINC\NEOMYCIN SULFATE\POLYMYXIN B SULFATE
     Indication: SKIN ULCER
     Dosage: UNK
     Route: 065

REACTIONS (10)
  - Cat scratch disease [Unknown]
  - Upper limb fracture [Unknown]
  - Limb crushing injury [Unknown]
  - Lip swelling [Unknown]
  - Spinal fracture [Unknown]
  - Skin ulcer [Unknown]
  - Road traffic accident [Unknown]
  - Animal bite [Unknown]
  - Pharyngeal swelling [Unknown]
  - Migraine [Unknown]
